FAERS Safety Report 4277495-X (Version None)
Quarter: 2004Q1

REPORT INFORMATION
  Report Type: 
  Country: None (occurrence: None)
  Receive Date: 20040122
  Receipt Date: 20020920
  Transmission Date: 20041129
  Serious: Yes (Other)
  Sender: FDA-Public Use
  Company Number: AU-BRISTOL-MYERS SQUIBB COMPANY-12046603

PATIENT
  Age: 77 Year
  Sex: Male

DRUGS (8)
  1. PRAVASTATIN SODIUM [Suspect]
     Dosage: MOST RECENT DOSE PRIOR TO THE EVENT WAS ON 09-SEP-2002.
     Route: 048
     Dates: start: 20011129
  2. GATIFLOXACIN [Suspect]
     Dosage: MOST RECENT DOSE PRIOR TO THE EVENT WAS ON 09-SEP-2002.
     Route: 048
     Dates: start: 20011213, end: 20010909
  3. METOPROLOL [Concomitant]
     Route: 048
     Dates: start: 20011122
  4. DIAFORMIN [Concomitant]
     Route: 048
     Dates: start: 19990101
  5. DIAMICRON [Concomitant]
     Route: 048
     Dates: start: 20000101
  6. ASPIRIN [Concomitant]
     Route: 048
     Dates: start: 19910722
  7. AVANDIA [Concomitant]
     Route: 048
     Dates: start: 20020328
  8. KARVEZIDE [Concomitant]
     Dosage: DOSE:  300/12.5 MG
     Route: 048
     Dates: start: 20000101

REACTIONS (6)
  - DYSARTHRIA [None]
  - HYPERHIDROSIS [None]
  - HYPOGLYCAEMIC COMA [None]
  - INFLUENZA [None]
  - MARKEDLY REDUCED DIETARY INTAKE [None]
  - NAUSEA [None]
